FAERS Safety Report 7954354-X (Version None)
Quarter: 2011Q4

REPORT INFORMATION
  Report Type: 
  Country: None (occurrence: None)
  Receive Date: 20111202
  Receipt Date: 20111122
  Transmission Date: 20120403
  Serious: Yes (Hospitalization, Other)
  Sender: FDA-Public Use
  Company Number: CA-JNJFOC-20111110901

PATIENT
  Sex: Male
  Weight: 69.5 kg

DRUGS (11)
  1. PANTOPRAZOLE [Concomitant]
  2. IMURAN [Concomitant]
  3. SEDATIVE [Concomitant]
  4. OXYCONTIN [Concomitant]
  5. VALIUM [Concomitant]
  6. WARFARIN SODIUM [Concomitant]
  7. CITALOPRAM [Concomitant]
  8. GLYBURIDE [Concomitant]
  9. REMICADE [Suspect]
     Indication: COLITIS ULCERATIVE
     Route: 042
     Dates: start: 20111004
  10. REMICADE [Suspect]
     Dosage: INFUSIONS 1-3
     Route: 042
     Dates: start: 20110711
  11. PREDNISONE TAB [Concomitant]

REACTIONS (1)
  - THROMBOSIS [None]
